FAERS Safety Report 7192212-1 (Version None)
Quarter: 2010Q4

REPORT INFORMATION
  Report Type: 
  Country: None (occurrence: None)
  Receive Date: 20101223
  Receipt Date: 20101214
  Transmission Date: 20110411
  Serious: Yes (Death)
  Sender: FDA-Public Use
  Company Number: JP-GENZYME-THYM-1001481

PATIENT
  Sex: Male
  Weight: 88 kg

DRUGS (9)
  1. THYMOGLOBULIN [Suspect]
     Indication: BONE MARROW CONDITIONING REGIMEN
     Dosage: 74 MG, QD
     Route: 042
     Dates: start: 20090427, end: 20090430
  2. FLUDARABINE PHOSPHATE [Concomitant]
     Dosage: UNK
     Dates: start: 20090423, end: 20090428
  3. TOTAL BODY IRRADIATION [Concomitant]
     Dosage: UNK
     Dates: start: 20090430, end: 20090430
  4. BACTRIM [Concomitant]
     Indication: INFECTION PROPHYLAXIS
     Dosage: UNK
     Dates: start: 20090423, end: 20090427
  5. TACROLIMUS [Concomitant]
     Indication: PROPHYLAXIS AGAINST GRAFT VERSUS HOST DISEASE
     Dosage: UNK
     Dates: start: 20090430, end: 20090615
  6. METHYLPREDNISOLONE SODIUM SUCCINATE [Concomitant]
     Indication: PROPHYLAXIS AGAINST GRAFT VERSUS HOST DISEASE
     Dosage: UNK
     Dates: start: 20090427, end: 20090605
  7. FILGRASTIM [Concomitant]
     Indication: INFECTION PROPHYLAXIS
     Dosage: UNK
     Dates: start: 20090502, end: 20090509
  8. CEFTAZIDIME [Concomitant]
     Indication: INFECTION PROPHYLAXIS
     Dosage: UNK
     Dates: start: 20090423, end: 20090516
  9. VORICONAZOLE [Concomitant]
     Indication: INFECTION PROPHYLAXIS
     Dosage: UNK
     Dates: start: 20090423, end: 20090506

REACTIONS (2)
  - MULTI-ORGAN FAILURE [None]
  - PNEUMONIA CYTOMEGALOVIRAL [None]
